FAERS Safety Report 4785001-6 (Version None)
Quarter: 2005Q3

REPORT INFORMATION
  Report Type: 
  Country: None (occurrence: None)
  Receive Date: 20050928
  Receipt Date: 20050919
  Transmission Date: 20060218
  Serious: Yes (Hospitalization)
  Sender: FDA-Public Use
  Company Number: 163-20785-05080214

PATIENT
  Age: 41 Year
  Sex: Male

DRUGS (2)
  1. THALOMID [Suspect]
     Indication: MULTIPLE MYELOMA
     Dosage: 200 MG, QD, ORAL
     Route: 048
     Dates: start: 20050628
  2. METHADONE HCL [Concomitant]

REACTIONS (4)
  - CATHETER SITE CELLULITIS [None]
  - CENTRAL LINE INFECTION [None]
  - PLASMACYTOMA [None]
  - STAPHYLOCOCCAL INFECTION [None]
